FAERS Safety Report 6393407-7 (Version None)
Quarter: 2009Q4

REPORT INFORMATION
  Report Type: 
  Country: None (occurrence: None)
  Receive Date: 20091008
  Receipt Date: 20091001
  Transmission Date: 20100525
  Serious: Yes (Death, Other)
  Sender: FDA-Public Use
  Company Number: US-B.I. PHARMACEUTICALS,INC./RIDGEFIELD-2009-DE-06311GD

PATIENT
  Age: 72 Year
  Sex: Male

DRUGS (12)
  1. DIPYRIDAMOL + ACETYSALICYLIC ACID [Suspect]
  2. WARFARIN SODIUM [Suspect]
  3. PROFILNINE [Suspect]
     Indication: HAEMORRHAGIC DISORDER
     Dosage: 50 U/KG
     Route: 042
  4. VITAMIN K TAB [Suspect]
     Indication: HAEMORRHAGIC DISORDER
     Dosage: 10 MG
     Route: 042
  5. DESMOPRESSIN ACETATE [Suspect]
     Indication: AZOTAEMIA
     Dosage: 24 MCG
     Route: 042
  6. DESMOPRESSIN ACETATE [Suspect]
     Indication: HAEMORRHAGE
  7. GABAPENTIN [Concomitant]
  8. PRAVASTATIN [Concomitant]
  9. OMEPRAZOLE [Concomitant]
  10. METOPROLOL [Concomitant]
  11. NIFEDIPINE [Concomitant]
  12. INSULIN [Concomitant]
     Indication: DIABETES MELLITUS

REACTIONS (7)
  - CARDIAC FAILURE [None]
  - CARDIAC TAMPONADE [None]
  - ELECTROMECHANICAL DISSOCIATION [None]
  - HYPERKALAEMIA [None]
  - INTRACARDIAC THROMBUS [None]
  - PERICARDIAL HAEMORRHAGE [None]
  - VENTRICULAR FIBRILLATION [None]
